FAERS Safety Report 9865703 (Version 1)
Quarter: 2014Q1

REPORT INFORMATION
  Report Type: Spontaneous
  Country: FR (occurrence: FR)
  Receive Date: 20140203
  Receipt Date: 20140203
  Transmission Date: 20141002
  Serious: Yes (Hospitalization, Other)
  Sender: FDA-Public Use
  Company Number: PHHY2014FR012336

PATIENT
  Age: 60 Year
  Sex: Male

DRUGS (2)
  1. LEPONEX [Suspect]
     Indication: SCHIZOPHRENIA
     Dosage: 450 MG, DAILY
     Dates: end: 20140127
  2. LOXAPAC [Concomitant]
     Dosage: 12.5 MG, IN THE EVENING

REACTIONS (11)
  - Gastroenteritis [Unknown]
  - Diarrhoea [Unknown]
  - Dehydration [Unknown]
  - Hypovolaemia [Unknown]
  - Rhabdomyolysis [Unknown]
  - Renal failure [Unknown]
  - Hepatitis [Unknown]
  - Somnolence [Unknown]
  - Myocarditis [Unknown]
  - Thrombocytopenia [Unknown]
  - Antipsychotic drug level increased [Unknown]
